FAERS Safety Report 14184553 (Version 1)
Quarter: 2017Q4

REPORT INFORMATION
  Report Type: Spontaneous
  Country: CH (occurrence: CH)
  Receive Date: 20171113
  Receipt Date: 20171113
  Transmission Date: 20180321
  Serious: Yes (Hospitalization)
  Sender: FDA-Public Use
  Company Number: CH-PFIZER INC-2017480995

PATIENT
  Age: 4 Month
  Sex: Male
  Weight: 3.8 kg

DRUGS (12)
  1. SEROQUEL [Suspect]
     Active Substance: QUETIAPINE FUMARATE
     Dosage: 100 MG AT BEDTIME + 25 MG IN RESER
     Route: 064
     Dates: start: 2016
  2. STILNOX [Suspect]
     Active Substance: ZOLPIDEM TARTRATE
     Dosage: 10 MG, DAILY
     Route: 064
     Dates: start: 2016
  3. TEMESTA (LORAZEPAM) [Suspect]
     Active Substance: LORAZEPAM
     Dosage: IN RESERVE 1MG 4X/DAY, NO REGULAR INTAKE, STOPPED IN EARLY PREGNANCY
     Route: 064
     Dates: start: 201611, end: 2016
  4. LYRICA [Suspect]
     Active Substance: PREGABALIN
     Dosage: 100MG, 3X/DAY (TREATMENT STOPPED IN EARLY PREGNANCY)
     Route: 064
     Dates: start: 201611, end: 2016
  5. STILNOX [Suspect]
     Active Substance: ZOLPIDEM TARTRATE
     Dosage: 12.5 MG, DAILY
     Route: 064
     Dates: start: 2016
  6. BRUFEN [Suspect]
     Active Substance: IBUPROFEN
     Dosage: 400MG, 3X/DAY (TREATMENT STOPPED DURING PREGNANCY)
     Route: 064
     Dates: start: 201611
  7. CIPRALEX [Suspect]
     Active Substance: ESCITALOPRAM OXALATE
     Dosage: 20 MG, DAILY
     Route: 064
     Dates: start: 2016
  8. ABILIFY [Suspect]
     Active Substance: ARIPIPRAZOLE
     Dosage: 10MG 2X/DAY, TREATMENT TAKEN UNTIL DELIVERY
     Route: 064
     Dates: start: 2016
  9. DAFALGAN [Suspect]
     Active Substance: ACETAMINOPHEN
     Dosage: 1G, 2X/DAY (ACCORDING TO CATAMNESIS IN RESERVE)
     Route: 064
     Dates: start: 201611
  10. LAMICTAL [Suspect]
     Active Substance: LAMOTRIGINE
     Dosage: 150MG DAILY (TREATMENT TAKEN UNTIL DELIVERY)
     Route: 064
     Dates: start: 2016
  11. SEROQUEL [Suspect]
     Active Substance: QUETIAPINE FUMARATE
     Dosage: 50 MG, DAILY (IN RESERVE IN THE EVENING UNTIL THE BEGINNING OF THE PREGNANCY)
     Route: 064
     Dates: start: 2016
  12. CIPRALEX [Suspect]
     Active Substance: ESCITALOPRAM OXALATE
     Dosage: 20MG/D DECREASED TO 10MG/D UNTIL DELIVERY
     Route: 064

REACTIONS (2)
  - Maternal exposure during pregnancy [Recovered/Resolved]
  - Hypoglycaemia neonatal [Recovered/Resolved]

NARRATIVE: CASE EVENT DATE: 201610
